FAERS Safety Report 15196849 (Version 5)
Quarter: 2019Q1

REPORT INFORMATION
  Report Type: Report from Study
  Country: FR (occurrence: FR)
  Receive Date: 20180725
  Receipt Date: 20190326
  Transmission Date: 20190417
  Serious: Yes (Death, Hospitalization, Other)
  Sender: FDA-Public Use
  Company Number: FR-CELGENEUS-FRA-20180706305

PATIENT
  Age: 78 Year
  Sex: Male
  Weight: 76.4 kg

DRUGS (13)
  1. AZACITIDINE INJECTABLE [Suspect]
     Active Substance: AZACITIDINE
     Indication: ACUTE MYELOID LEUKAEMIA
     Dosage: 33.5 MILLIGRAM
     Route: 058
     Dates: start: 20180312, end: 20180626
  2. AUGMENTIN [Concomitant]
     Active Substance: AMOXICILLIN\CLAVULANATE POTASSIUM
     Indication: INFLAMMATION
     Dosage: 3 GRAM
     Route: 048
     Dates: start: 20180430
  3. SIMVASTATIN. [Concomitant]
     Active Substance: SIMVASTATIN
     Indication: DYSLIPIDAEMIA
     Dosage: 40 MILLIGRAM
     Route: 048
  4. OFLOCET [Concomitant]
     Active Substance: OFLOXACIN
     Indication: INFLAMMATION
     Dosage: 400 MILLIGRAM
     Route: 065
     Dates: start: 20180430
  5. TAZOCILLINE [Concomitant]
     Active Substance: PIPERACILLIN SODIUM\TAZOBACTAM SODIUM
     Indication: DEVICE RELATED INFECTION
     Route: 041
     Dates: start: 201806, end: 20180612
  6. ATENOLOL. [Concomitant]
     Active Substance: ATENOLOL
     Indication: HYPERTENSION
     Dosage: 50 MILLIGRAM
     Route: 048
  7. KARDEGIC [Concomitant]
     Active Substance: ASPIRIN DL-LYSINE
     Indication: CARDIOVASCULAR EVENT PROPHYLAXIS
     Dosage: 75 MILLIGRAM
     Route: 065
  8. TAZOCILLINE [Concomitant]
     Active Substance: PIPERACILLIN SODIUM\TAZOBACTAM SODIUM
     Indication: FEBRILE BONE MARROW APLASIA
     Route: 041
     Dates: start: 201807
  9. VANCOMYCINE [Concomitant]
     Active Substance: VANCOMYCIN
     Indication: FEBRILE BONE MARROW APLASIA
     Route: 065
     Dates: start: 20180603, end: 20180612
  10. AMIKACIN. [Concomitant]
     Active Substance: AMIKACIN
     Indication: FEBRILE BONE MARROW APLASIA
     Route: 065
     Dates: start: 201806, end: 20180612
  11. PRACINOSTAT [Concomitant]
     Active Substance: PRACINOSTAT
     Indication: ACUTE MYELOID LEUKAEMIA
     Dosage: 25.7143 MILLIGRAM
     Route: 065
     Dates: start: 20180312, end: 20180704
  12. EXJADE [Concomitant]
     Active Substance: DEFERASIROX
     Indication: PRODUCT USED FOR UNKNOWN INDICATION
     Dosage: 625 MILLIGRAM
     Route: 065
     Dates: start: 20170328
  13. AMIKACIN. [Concomitant]
     Active Substance: AMIKACIN
     Route: 041
     Dates: start: 201807

REACTIONS (1)
  - Febrile bone marrow aplasia [Fatal]

NARRATIVE: CASE EVENT DATE: 20180703
